FAERS Safety Report 7914037-9 (Version None)
Quarter: 2011Q4

REPORT INFORMATION
  Report Type: 
  Country: None (occurrence: None)
  Receive Date: 20111115
  Receipt Date: 20111110
  Transmission Date: 20120403
  Serious: Yes (Hospitalization, Congenital Anomaly, Other)
  Sender: FDA-Public Use
  Company Number: US-PFIZER INC-2011246526

PATIENT
  Sex: Male
  Weight: 3.18 kg

DRUGS (5)
  1. ZOLOFT [Suspect]
     Indication: DEPRESSION
     Dosage: 100 MG, 1X/DAY
     Route: 064
  2. BENADRYL [Concomitant]
     Dosage: UNK
     Route: 064
  3. ZYRTEC [Concomitant]
     Indication: ASTHMA
     Dosage: 5-10 MG
     Route: 064
     Dates: start: 20030702
  4. ROLAIDS [Concomitant]
     Dosage: UNK
     Route: 064
  5. MULTI-VITAMINS [Concomitant]
     Dosage: UNK
     Route: 064

REACTIONS (17)
  - SHONE COMPLEX [None]
  - SUPRAVENTRICULAR TACHYCARDIA [None]
  - ADENOIDAL HYPERTROPHY [None]
  - BLOOD GLUCOSE INCREASED [None]
  - CONGENITAL CHOROID PLEXUS CYST [None]
  - OTITIS MEDIA [None]
  - CLEFT PALATE [None]
  - VELOPHARYNGEAL INCOMPETENCE [None]
  - FOETAL EXPOSURE DURING PREGNANCY [None]
  - SPEECH DISORDER DEVELOPMENTAL [None]
  - MENTAL STATUS CHANGES [None]
  - CONGENITAL CORONARY ARTERY MALFORMATION [None]
  - NASAL OBSTRUCTION [None]
  - DYSARTHRIA [None]
  - MITRAL VALVE HYPOPLASIA [None]
  - HYPOPLASTIC LEFT HEART SYNDROME [None]
  - JAUNDICE NEONATAL [None]
